FAERS Safety Report 9613302 (Version 2)
Quarter: 2013Q4

REPORT INFORMATION
  Report Type: Spontaneous
  Country: IT (occurrence: IT)
  Receive Date: 20131010
  Receipt Date: 20131122
  Transmission Date: 20140711
  Serious: Yes (Hospitalization, Other)
  Sender: FDA-Public Use
  Company Number: IT-BRISTOL-MYERS SQUIBB COMPANY-19471754

PATIENT
  Age: 49 Year
  Sex: Female

DRUGS (7)
  1. REYATAZ CAPS 300 MG [Suspect]
     Indication: HIV INFECTION
     Route: 048
  2. REYATAZ CAPS 300 MG [Suspect]
     Indication: HEPATIC CIRRHOSIS
     Route: 048
  3. RITONAVIR [Concomitant]
     Route: 048
     Dates: start: 20080211, end: 20080904
  4. TENOFOVIR DISOPROXIL FUMARATE [Concomitant]
     Route: 048
     Dates: start: 20080211, end: 20080904
  5. LAMIVUDINE [Concomitant]
     Route: 048
  6. LEVOTHYROXINE SODIUM [Concomitant]
     Route: 048
  7. METHADONE HCL [Concomitant]

REACTIONS (2)
  - Jaundice hepatocellular [None]
  - Hepatic failure [Unknown]
